FAERS Safety Report 21221889 (Version 1)
Quarter: 2022Q3

REPORT INFORMATION
  Report Type: Spontaneous
  Country: US (occurrence: US)
  Receive Date: 20220817
  Receipt Date: 20220817
  Transmission Date: 20221026
  Serious: Yes (Other)
  Sender: FDA-Public Use
  Company Number: US-Blueprint Medicines Corporation-331

PATIENT
  Sex: Female

DRUGS (2)
  1. AYVAKIT [Suspect]
     Active Substance: AVAPRITINIB
     Indication: Systemic mastocytosis
     Route: 048
  2. AYVAKIT [Suspect]
     Active Substance: AVAPRITINIB
     Route: 048
     Dates: start: 20210928

REACTIONS (13)
  - Bladder operation [Unknown]
  - Back pain [Unknown]
  - Mean cell volume decreased [Unknown]
  - Pain [Unknown]
  - Urinary tract infection [Unknown]
  - Pyrexia [Unknown]
  - Blood phosphorus decreased [Unknown]
  - Red blood cell count decreased [Unknown]
  - Blood creatinine increased [Unknown]
  - Nausea [Unknown]
  - Fatigue [Unknown]
  - Hair colour changes [Recovering/Resolving]
  - Tryptase increased [Unknown]
